FAERS Safety Report 9853871 (Version 1)
Quarter: 2014Q1

REPORT INFORMATION
  Report Type: Spontaneous
  Country: JP (occurrence: JP)
  Receive Date: 20140129
  Receipt Date: 20140129
  Transmission Date: 20141002
  Serious: Yes (Other)
  Sender: FDA-Public Use
  Company Number: JP-TAKEDA-2014TJP000882

PATIENT
  Age: 60 Year
  Sex: Male

DRUGS (2)
  1. TAKEPRON CAPSULES 30 [Suspect]
     Dosage: UNK
     Route: 048
  2. BAYASPIRIN [Concomitant]
     Dosage: UNK
     Route: 048

REACTIONS (2)
  - Rhabdomyolysis [Unknown]
  - Pain in extremity [Unknown]
